FAERS Safety Report 7293823-5 (Version None)
Quarter: 2011Q1

REPORT INFORMATION
  Report Type: 
  Country: None (occurrence: None)
  Receive Date: 20110203
  Receipt Date: 20110118
  Transmission Date: 20110831
  Serious: Yes (Hospitalization, Other)
  Sender: FDA-Public Use
  Company Number: 023738

PATIENT
  Sex: Female
  Weight: 51 kg

DRUGS (7)
  1. PROPRANOLOL [Concomitant]
  2. ESOMEPRAZOLE [Concomitant]
  3. SERTRALINE HYDROCHLORIDE [Concomitant]
  4. CIMZIA [Suspect]
     Indication: CROHN'S DISEASE
     Dosage: (400 MG 1X/MONTH SUBCUTANEOUS) (200 MG 1X/2 WEEKS SUBCUTANEOUS)
     Route: 058
     Dates: start: 20100122
  5. CIMZIA [Suspect]
     Indication: CROHN'S DISEASE
     Dosage: (400 MG 1X/MONTH SUBCUTANEOUS) (200 MG 1X/2 WEEKS SUBCUTANEOUS)
     Route: 058
     Dates: start: 20101020
  6. WARFARIN [Concomitant]
  7. PRAMIPEXOLE [Concomitant]

REACTIONS (1)
  - STAPHYLOCOCCAL SKIN INFECTION [None]
